FAERS Safety Report 5396384-0 (Version None)
Quarter: 2007Q3

REPORT INFORMATION
  Report Type: 
  Country: None (occurrence: None)
  Receive Date: 20070725
  Receipt Date: 20070716
  Transmission Date: 20080115
  Serious: Yes (Other)
  Sender: FDA-Public Use
  Company Number: US-AMGEN-STX234560

PATIENT
  Sex: Female

DRUGS (2)
  1. ENBREL [Suspect]
     Indication: PSORIATIC ARTHROPATHY
     Route: 058
     Dates: start: 20001001, end: 20070101
  2. ENBREL [Suspect]
     Indication: PSORIASIS

REACTIONS (7)
  - CONVULSION [None]
  - EYE IRRITATION [None]
  - HYPERCHLORHYDRIA [None]
  - LOSS OF CONSCIOUSNESS [None]
  - PSORIATIC ARTHROPATHY [None]
  - SINUSITIS [None]
  - SPEECH DISORDER [None]
